FAERS Safety Report 5177904-8 (Version None)
Quarter: 2006Q4

REPORT INFORMATION
  Report Type: 
  Country: None (occurrence: None)
  Receive Date: 20061218
  Receipt Date: 20060726
  Transmission Date: 20070319
  Serious: No
  Sender: FDA-Public Use
  Company Number: US-AMGEN-KDL187918

PATIENT
  Sex: Female

DRUGS (2)
  1. ENBREL [Suspect]
     Indication: RHEUMATOID ARTHRITIS
     Route: 058
     Dates: start: 20010906
  2. PLAQUENIL [Concomitant]
     Dates: start: 19930101

REACTIONS (5)
  - CATARACT [None]
  - LOCALISED INFECTION [None]
  - MYOPIA [None]
  - READING DISORDER [None]
  - VISION BLURRED [None]
